FAERS Safety Report 5786508-5 (Version None)
Quarter: 2008Q2

REPORT INFORMATION
  Report Type: 
  Country: None (occurrence: None)
  Receive Date: 20080624
  Receipt Date: 20080623
  Transmission Date: 20081010
  Serious: Yes (Death)
  Sender: FDA-Public Use
  Company Number: JP-BRISTOL-MYERS SQUIBB COMPANY-14232334

PATIENT
  Age: 74 Year
  Sex: Female

DRUGS (5)
  1. TAXOL [Suspect]
     Indication: PERITONEAL CARCINOMA
     Dosage: INITIATED ON MAY07, COMPLETED 6 CYCLES, PERITONEAL CARCINOMA REPLASED SO TREATED WITH 2 MORE CYCLES
     Route: 041
     Dates: start: 20080507, end: 20080507
  2. PARAPLATIN [Suspect]
     Indication: PERITONEAL CARCINOMA
     Dosage: INITIATED ON MAY07, COMPLETED 6 CYCLES, PERITONEAL CARCINOMA REPLASED SO TREATED WITH 2 MORE CYCLES
     Route: 041
     Dates: start: 20080507, end: 20080507
  3. MAGNESIUM OXIDE [Concomitant]
     Route: 048
  4. NAUZELIN [Concomitant]
     Route: 065
  5. LOXONIN [Concomitant]
     Route: 065

REACTIONS (1)
  - GASTROINTESTINAL PERFORATION [None]
